FAERS Safety Report 10251372 (Version 2)
Quarter: 2014Q2

REPORT INFORMATION
  Report Type: Spontaneous
  Country: JP (occurrence: JP)
  Receive Date: 20140622
  Receipt Date: 20140627
  Transmission Date: 20141212
  Serious: Yes (Hospitalization, Other)
  Sender: FDA-Public Use
  Company Number: JP-MERCK-1406JPN009155

PATIENT
  Age: 67 Year
  Sex: Male

DRUGS (3)
  1. GLACTIV [Suspect]
     Indication: TYPE 2 DIABETES MELLITUS
     Dosage: 50 MG ONCE A DAY
     Route: 048
  2. AMARYL [Concomitant]
     Dosage: UNK
  3. MEDET [Concomitant]
     Dosage: UNK

REACTIONS (3)
  - Road traffic accident [Unknown]
  - Somnolence [Unknown]
  - Hypoglycaemia [Unknown]
